FAERS Safety Report 4950087-2 (Version None)
Quarter: 2006Q1

REPORT INFORMATION
  Report Type: 
  Country: None (occurrence: None)
  Receive Date: 20060320
  Receipt Date: 20060320
  Transmission Date: 20060701
  Serious: Yes (Hospitalization)
  Sender: FDA-Public Use
  Company Number: None

PATIENT
  Sex: Female
  Weight: 113 kg

DRUGS (14)
  1. TEMODAR [Suspect]
     Indication: GLIOBLASTOMA MULTIFORME
     Dosage: 480MG PO QD FOR 5 DAYS
     Route: 048
     Dates: start: 20060307, end: 20060311
  2. GLEEVEC [Suspect]
     Dosage: 600MG PO BID FOR 8 DAYS
     Route: 048
     Dates: start: 20060304, end: 20060311
  3. DILANTIN [Concomitant]
  4. LISINOPRIL [Concomitant]
  5. METFORMIN [Concomitant]
  6. PEPCID [Concomitant]
  7. PROZAC [Concomitant]
  8. DECADRON SRC [Concomitant]
  9. MULTIPLE SUPPLEMENTS [Concomitant]
  10. JUICE PLUS [Concomitant]
  11. CELLCEPT [Concomitant]
  12. COENZYME Q10 [Concomitant]
  13. CELLFORTE [Concomitant]
  14. FISH OIL [Concomitant]

REACTIONS (8)
  - DRUG TOXICITY [None]
  - HYPERBILIRUBINAEMIA [None]
  - NAUSEA [None]
  - NEPHRITIS INTERSTITIAL [None]
  - ORAL INTAKE REDUCED [None]
  - PYREXIA [None]
  - RASH [None]
  - URINE ANALYSIS ABNORMAL [None]
